FAERS Safety Report 5876507-7 (Version None)
Quarter: 2008Q3

REPORT INFORMATION
  Report Type: 
  Country: None (occurrence: None)
  Receive Date: 20080910
  Receipt Date: 20080903
  Transmission Date: 20090109
  Serious: Yes (Death)
  Sender: FDA-Public Use
  Company Number: B0533651A

PATIENT
  Age: 59 Year
  Sex: Male
  Weight: 75 kg

DRUGS (5)
  1. AVANDIA [Suspect]
     Route: 065
     Dates: start: 20020404
  2. GLUCOPHAGE [Concomitant]
     Dosage: 500MG TWICE PER DAY
  3. DIAMICRON (GLICLAZIDE) [Concomitant]
     Dosage: 16MG TWICE PER DAY
     Dates: start: 19940902
  4. PRAVASTATIN [Concomitant]
     Dosage: 40MG PER DAY
     Dates: start: 20001002
  5. NUSEAL ASPIRIN [Concomitant]
     Dosage: 75MG PER DAY
     Dates: start: 20001002

REACTIONS (5)
  - ARTERIOSCLEROSIS CORONARY ARTERY [None]
  - CARDIAC ARREST [None]
  - LUNG CANCER METASTATIC [None]
  - MYOCARDIAL INFARCTION [None]
  - VENTRICULAR ARRHYTHMIA [None]
